FAERS Safety Report 19511906 (Version 1)
Quarter: 2021Q3

REPORT INFORMATION
  Report Type: Spontaneous
  Country: US (occurrence: US)
  Receive Date: 20210709
  Receipt Date: 20210709
  Transmission Date: 20211014
  Serious: Yes (Hospitalization)
  Sender: FDA-Public Use
  Company Number: None

PATIENT
  Age: 46 Year
  Sex: Female

DRUGS (11)
  1. VITAMIN B12 [Concomitant]
     Active Substance: CYANOCOBALAMIN
  2. DIAZEPAM. [Concomitant]
     Active Substance: DIAZEPAM
  3. MESALAMINE. [Concomitant]
     Active Substance: MESALAMINE
  4. K?TAB [Concomitant]
     Active Substance: POTASSIUM CHLORIDE
  5. AMLODIPINE [Concomitant]
     Active Substance: AMLODIPINE BESYLATE
  6. FERROUS SULF SYR [Concomitant]
  7. HUMIRA [Suspect]
     Active Substance: ADALIMUMAB
     Indication: CROHN^S DISEASE
     Dosage: ?          OTHER FREQUENCY:1 PEN QOWK;?
     Route: 058
     Dates: start: 20171011, end: 20210413
  8. PRISTIQ EXTENDED?RELEASE [Concomitant]
     Active Substance: DESVENLAFAXINE SUCCINATE
  9. PROBIOTIC CAP [Concomitant]
  10. MULTIVITAMIN TAB ADULT [Concomitant]
  11. HUMIRA [Suspect]
     Active Substance: ADALIMUMAB
     Indication: RECTAL HAEMORRHAGE
     Dosage: ?          OTHER FREQUENCY:1 PEN QOWK;?
     Route: 058
     Dates: start: 20171011, end: 20210413

REACTIONS (1)
  - Hospitalisation [None]

NARRATIVE: CASE EVENT DATE: 20210414
